FAERS Safety Report 24820572 (Version 1)
Quarter: 2025Q1

REPORT INFORMATION
  Report Type: Spontaneous
  Country: US (occurrence: US)
  Receive Date: 20250108
  Receipt Date: 20250108
  Transmission Date: 20250408
  Serious: No
  Sender: PHARMACEUTICAL ASSOC
  Company Number: US-PAIPHARMA-2024-US-028167

PATIENT
  Age: 83 Year
  Sex: Male

DRUGS (4)
  1. Breyna Inhaler [Concomitant]
  2. WARFARIN [Concomitant]
     Active Substance: WARFARIN
  3. VITAMINS [Concomitant]
     Active Substance: VITAMINS
  4. NYSTATIN [Suspect]
     Active Substance: NYSTATIN
     Indication: Oral candidiasis
     Route: 048
     Dates: start: 20240510

REACTIONS (1)
  - Anxiety [Not Recovered/Not Resolved]

NARRATIVE: CASE EVENT DATE: 20240512
